FAERS Safety Report 5528361-0 (Version None)
Quarter: 2007Q4

REPORT INFORMATION
  Report Type: 
  Country: None (occurrence: None)
  Receive Date: 20071128
  Receipt Date: 20071121
  Transmission Date: 20080405
  Serious: Yes (Death)
  Sender: FDA-Public Use
  Company Number: US-GILEAD-2007-0014347

PATIENT
  Sex: Male

DRUGS (7)
  1. ATRIPLA [Suspect]
     Dates: start: 20060720
  2. WELLBUTRIN XL [Concomitant]
     Dates: start: 20061205
  3. MARINOL [Concomitant]
     Dates: start: 20061205
  4. SOLUVITE [Concomitant]
  5. BACTRIM DS [Concomitant]
     Route: 048
  6. ZITHROMAX [Concomitant]
     Dates: start: 20061205
  7. ZYRTEC [Concomitant]

REACTIONS (1)
  - PNEUMOCYSTIS JIROVECI PNEUMONIA [None]
